FAERS Safety Report 18255298 (Version 2)
Quarter: 2020Q4

REPORT INFORMATION
  Report Type: Report from Study
  Country: US (occurrence: US)
  Receive Date: 20200911
  Receipt Date: 20201103
  Transmission Date: 20210113
  Serious: Yes (Other)
  Sender: FDA-Public Use
  Company Number: US-EMD SERONO-9184958

PATIENT
  Age: 74 Year
  Sex: Female

DRUGS (1)
  1. REBIF [Suspect]
     Active Substance: INTERFERON BETA-1A
     Indication: RELAPSING-REMITTING MULTIPLE SCLEROSIS
     Dosage: REBIF PREFILLED SYRINGE
     Route: 058
     Dates: start: 20070825

REACTIONS (12)
  - Malaise [Unknown]
  - Dysgeusia [Unknown]
  - Headache [Unknown]
  - Pituitary tumour benign [Not Recovered/Not Resolved]
  - Vomiting [Unknown]
  - Disease progression [Not Recovered/Not Resolved]
  - Multiple sclerosis relapse [Unknown]
  - Influenza like illness [Recovered/Resolved]
  - Fatigue [Unknown]
  - Treatment failure [Unknown]
  - Abdominal discomfort [Unknown]
  - Hepatic enzyme increased [Recovered/Resolved]

NARRATIVE: CASE EVENT DATE: 2020
